FAERS Safety Report 25924679 (Version 1)
Quarter: 2025Q4

REPORT INFORMATION
  Report Type: Spontaneous
  Country: US (occurrence: None)
  Receive Date: 20251013
  Receipt Date: 20251013
  Transmission Date: 20260117
  Serious: Yes (Other)
  Sender: FDA-CTU
  Company Number: None

PATIENT
  Age: 41 Year
  Sex: Female
  Weight: 67.5 kg

DRUGS (1)
  1. ABILIFY MAINTENA [Suspect]
     Active Substance: ARIPIPRAZOLE
     Indication: Bipolar disorder
     Dates: start: 20250815, end: 20250815

REACTIONS (9)
  - Emotional poverty [None]
  - Dissociation [None]
  - Anxiety [None]
  - Feeling abnormal [None]
  - Asthenia [None]
  - Apathy [None]
  - Panic attack [None]
  - Mental disorder [None]
  - Emotional distress [None]

NARRATIVE: CASE EVENT DATE: 20250815
